FAERS Safety Report 14578862 (Version 1)
Quarter: 2018Q1

REPORT INFORMATION
  Report Type: Spontaneous
  Country: US (occurrence: US)
  Receive Date: 20180227
  Receipt Date: 20180227
  Transmission Date: 20180509
  Serious: No
  Sender: FDA-Public Use
  Company Number: US-PERRIGO-17US001120

PATIENT
  Age: 80 Year
  Sex: Male
  Weight: 63.39 kg

DRUGS (4)
  1. NAPROXEN SODIUM. [Suspect]
     Active Substance: NAPROXEN SODIUM
     Indication: PAIN
     Dosage: 220 MG, PRN
     Route: 048
     Dates: start: 201701, end: 20170123
  2. FOLIC ACID. [Concomitant]
     Active Substance: FOLIC ACID
     Indication: SUPPLEMENTATION THERAPY
     Dosage: UNK
     Route: 048
  3. PROBIOTICS NOS [Suspect]
     Active Substance: PROBIOTICS NOS
     Indication: SUPPLEMENTATION THERAPY
     Dosage: ONE CAPSULE, QD
     Route: 048
     Dates: start: 201701
  4. PRAVASTATIN. [Concomitant]
     Active Substance: PRAVASTATIN
     Indication: BLOOD CHOLESTEROL INCREASED
     Dosage: UNK
     Route: 048

REACTIONS (2)
  - Expired product administered [Recovered/Resolved]
  - Peripheral swelling [Recovering/Resolving]

NARRATIVE: CASE EVENT DATE: 201701
